FAERS Safety Report 25402516 (Version 1)
Quarter: 2025Q2

REPORT INFORMATION
  Report Type: Spontaneous
  Country: US (occurrence: None)
  Receive Date: 20250605
  Receipt Date: 20250605
  Transmission Date: 20250717
  Serious: No
  Sender: AXSOME THERAPEUTICS, INC.
  Company Number: US-Axsome Therapeutics, Inc.-AXS202505-000902

PATIENT
  Sex: Female

DRUGS (1)
  1. SUNOSI [Suspect]
     Active Substance: SOLRIAMFETOL
     Indication: Parkinson^s disease
     Route: 065
     Dates: start: 20250520, end: 20250522

REACTIONS (2)
  - Hypertension [Not Recovered/Not Resolved]
  - Drug effective for unapproved indication [Unknown]
